FAERS Safety Report 6295727-3 (Version None)
Quarter: 2009Q3

REPORT INFORMATION
  Report Type: 
  Country: None (occurrence: None)
  Receive Date: 20090803
  Receipt Date: 20090803
  Transmission Date: 20100115
  Serious: Yes (Hospitalization)
  Sender: FDA-Public Use
  Company Number: None

PATIENT
  Sex: Male

DRUGS (1)
  1. REVLIMID [Suspect]
     Indication: PROSTATE CANCER
     Dosage: 25MG QD X 21 PO
     Route: 048
     Dates: start: 20090617

REACTIONS (2)
  - DEHYDRATION [None]
  - HYPOPHAGIA [None]
